FAERS Safety Report 4417351-7 (Version None)
Quarter: 2004Q3

REPORT INFORMATION
  Report Type: 
  Country: None (occurrence: None)
  Receive Date: 20040806
  Receipt Date: 20040727
  Transmission Date: 20050211
  Serious: Yes (Hospitalization)
  Sender: FDA-Public Use
  Company Number: PHHO2004JP10664

PATIENT
  Age: 69 Year
  Sex: Male
  Weight: 60 kg

DRUGS (7)
  1. DIOVAN [Suspect]
     Dosage: 80 MG, QD
     Route: 048
     Dates: start: 20030528, end: 20031215
  2. DIGOSIN [Concomitant]
     Indication: CARDIAC FAILURE
     Dosage: .25 MG, QD
     Route: 048
     Dates: start: 20030528, end: 20031215
  3. WARFARIN SODIUM [Concomitant]
     Indication: CEREBRAL ARTERY EMBOLISM
     Dosage: 1 MG, QD
     Route: 048
     Dates: start: 20030430, end: 20031215
  4. FRANDOL [Concomitant]
     Indication: ANGINA PECTORIS
     Dosage: 20 MG, QD
     Route: 048
     Dates: start: 20030430, end: 20031215
  5. ALTAT [Concomitant]
     Indication: GASTRITIS
     Dosage: 75 MG, QD
     Route: 048
     Dates: start: 20030430, end: 20031215
  6. CYANOCOBALAMIN [Concomitant]
     Indication: MYASTHENIC SYNDROME
     Dosage: 500 UG, QD
     Route: 048
     Dates: start: 20030430, end: 20031215
  7. MESTINON [Concomitant]
     Indication: MYASTHENIC SYNDROME
     Dosage: 180 MG, QD
     Route: 048
     Dates: start: 20030430, end: 20031215

REACTIONS (1)
  - CEREBRAL INFARCTION [None]
